FAERS Safety Report 5522093-0 (Version None)
Quarter: 2007Q4

REPORT INFORMATION
  Report Type: 
  Country: None (occurrence: None)
  Receive Date: 20071120
  Receipt Date: 20071112
  Transmission Date: 20080405
  Serious: Yes (Hospitalization, Other)
  Sender: FDA-Public Use
  Company Number: US-ROCHE-467340

PATIENT
  Age: 21 Year
  Sex: Male
  Weight: 73.9 kg

DRUGS (8)
  1. ACCUTANE [Suspect]
     Indication: ACNE
     Route: 048
     Dates: start: 19980331, end: 19980430
  2. ACCUTANE [Suspect]
     Route: 048
     Dates: start: 19980714, end: 19990101
  3. ZITHROMAX [Concomitant]
     Dosage: GENERIC REPORTED AS ZITHROMAX.
     Route: 048
     Dates: start: 19980714
  4. ACCUPRIL [Concomitant]
     Route: 048
     Dates: start: 19980826
  5. PERCOCET [Concomitant]
     Dosage: GENERIC REPORTED AS OXYCODONE W/APAP.  STRENGTH REPORTED AS 5/325.
     Route: 048
     Dates: start: 19981007
  6. TRIAMCINOLONE [Concomitant]
     Route: 061
     Dates: start: 19981021
  7. LIBRAX [Concomitant]
     Route: 048
     Dates: start: 19981228
  8. FLUMADINE [Concomitant]
     Route: 048
     Dates: start: 19981228

REACTIONS (33)
  - ABDOMINAL ABSCESS [None]
  - BLOOD ALBUMIN ABNORMAL [None]
  - CHRONIC SINUSITIS [None]
  - COLITIS [None]
  - COLITIS ULCERATIVE [None]
  - COLONIC POLYP [None]
  - CROHN'S DISEASE [None]
  - DISEASE RECURRENCE [None]
  - DRY MOUTH [None]
  - FEELING OF DESPAIR [None]
  - GILBERT'S SYNDROME [None]
  - HAEMATOCHEZIA [None]
  - HAEMATOCRIT ABNORMAL [None]
  - HAEMORRHOIDS [None]
  - HAMARTOMA [None]
  - HEADACHE [None]
  - HYPERBILIRUBINAEMIA [None]
  - ILEUS [None]
  - INFLAMMATORY BOWEL DISEASE [None]
  - INGUINAL HERNIA [None]
  - IRRITABLE BOWEL SYNDROME [None]
  - LIP DRY [None]
  - NASAL SEPTUM DEVIATION [None]
  - NASAL TURBINATE HYPERTROPHY [None]
  - NERVOUS SYSTEM DISORDER [None]
  - PELVIC ABSCESS [None]
  - PELVIC INFECTION [None]
  - PLEURAL EFFUSION [None]
  - POLYP [None]
  - POUCHITIS [None]
  - PSEUDOPOLYP [None]
  - UMBILICAL HERNIA [None]
  - WHITE BLOOD CELL DISORDER [None]
